FAERS Safety Report 25474483 (Version 1)
Quarter: 2025Q2

REPORT INFORMATION
  Report Type: Spontaneous
  Country: US (occurrence: None)
  Receive Date: 20250618
  Receipt Date: 20250618
  Transmission Date: 20250716
  Serious: Yes (Hospitalization)
  Sender: FDA-CTU
  Company Number: None

PATIENT
  Age: 24 Year
  Sex: Female
  Weight: 81.65 kg

DRUGS (2)
  1. BENLYSTA [Suspect]
     Active Substance: BELIMUMAB
     Indication: Systemic lupus erythematosus
     Route: 042
     Dates: start: 20220708
  2. BENLYSTA [Concomitant]
     Active Substance: BELIMUMAB

REACTIONS (5)
  - Pyrexia [None]
  - Tremor [None]
  - Vomiting [None]
  - Headache [None]
  - Infusion related reaction [None]

NARRATIVE: CASE EVENT DATE: 20250616
